FAERS Safety Report 6820877-X (Version None)
Quarter: 2010Q3

REPORT INFORMATION
  Report Type: 
  Country: None (occurrence: None)
  Receive Date: 20100707
  Receipt Date: 20070707
  Transmission Date: 20110219
  Serious: No
  Sender: FDA-Public Use
  Company Number: US-PFIZER INC-2007055699

PATIENT
  Sex: Female
  Weight: 109.8 kg

DRUGS (7)
  1. ZOLOFT [Suspect]
     Indication: DEPRESSION
     Dates: start: 20070101
  2. ZOLOFT [Suspect]
     Indication: NERVOUSNESS
  3. CHANTIX [Suspect]
     Indication: SMOKING CESSATION THERAPY
     Dates: start: 20070623
  4. METFORMIN HCL [Concomitant]
  5. FUROSEMIDE [Concomitant]
  6. DIOVAN HCT [Concomitant]
  7. OTHER ANTI-ASTHMATICS, INHALANTS [Concomitant]
     Route: 055

REACTIONS (4)
  - DECREASED APPETITE [None]
  - NAUSEA [None]
  - VOMITING [None]
  - WEIGHT DECREASED [None]
